FAERS Safety Report 17727012 (Version 1)
Quarter: 2020Q2

REPORT INFORMATION
  Report Type: Spontaneous
  Country: CN (occurrence: CN)
  Receive Date: 20200430
  Receipt Date: 20200430
  Transmission Date: 20200714
  Serious: Yes (Other)
  Sender: FDA-Public Use
  Company Number: CN-ROCHE-2590105

PATIENT
  Age: 57 Year
  Sex: Male

DRUGS (21)
  1. XELODA [Suspect]
     Active Substance: CAPECITABINE
     Dosage: DAY 1-14
     Route: 048
     Dates: start: 20180322
  2. FLUOROURACIL. [Concomitant]
     Active Substance: FLUOROURACIL
     Indication: ADENOCARCINOMA
     Dosage: FOLFIRI REGIMEN, ON 13/MAR, 27/MAR, 10/APR, 26/APR AND 08/MAY/2019
     Route: 065
     Dates: start: 20190313
  3. FOLINATE [Concomitant]
     Active Substance: LEUCOVORIN CALCIUM
     Indication: RECTAL CANCER
     Dosage: DAY1, FOLFIRI REGIMEN
     Route: 041
     Dates: start: 20190227
  4. FOLINATE [Concomitant]
     Active Substance: LEUCOVORIN CALCIUM
     Dosage: FLOFOXIRI REGIMEN, DAY 1 ON 27/MAY, 11/JUN, 26/JUN AND 23/JUL/2019
     Route: 065
     Dates: start: 20190527
  5. XELODA [Suspect]
     Active Substance: CAPECITABINE
     Indication: RECTAL CANCER
     Dosage: 6 CYCLES, 1.0G AT MORNING, 1.5G AT NIGHT
     Route: 048
     Dates: start: 20170413
  6. XELODA [Suspect]
     Active Substance: CAPECITABINE
     Indication: ADENOCARCINOMA
     Dosage: 6 CYCLES, ON 09/SEP/2017, 17/OCT/2017, 17/NOV/2017, 19/DEC/2017, 15/JAN/2018 AND 06/FEB/2018
     Route: 048
     Dates: start: 20170909
  7. AVASTIN [Suspect]
     Active Substance: BEVACIZUMAB
     Indication: RECTAL CANCER
     Dosage: DAY1 ON 13/MAR, 27/MAR, 10/APR, 26/APR AND 08/MAY/2019, 5 TIMES
     Route: 065
     Dates: start: 20190313
  8. OXALIPLATIN. [Concomitant]
     Active Substance: OXALIPLATIN
     Indication: RECTAL CANCER
     Dosage: DAY1
     Route: 065
     Dates: start: 20170413
  9. IRINOTECAN [Concomitant]
     Active Substance: IRINOTECAN
     Dosage: FLOFOXIRI REGIMEN, DAY 1 ON 27/MAY, 11/JUN, 26/JUN AND 23/JUL/2019
     Route: 065
     Dates: start: 20190527
  10. FLUOROURACIL. [Concomitant]
     Active Substance: FLUOROURACIL
     Indication: RECTAL CANCER
     Dosage: DAY1, FOLFIRI REGIMEN, 3.6G CIV FOR 46 HOURS
     Route: 041
     Dates: start: 20190227
  11. APATINIB [Concomitant]
     Active Substance: APATINIB
     Indication: RECTAL CANCER
     Route: 048
     Dates: start: 20190101
  12. CAMRELIZUMAB [Concomitant]
     Active Substance: CAMRELIZUMAB
     Indication: RECTAL CANCER
     Dosage: DAY 1, EVERY 2 WEEKS AS ONE CYCLE, ON 25/SEP, 12/OCT, 25/OCT AND 08/NOV/2019
     Route: 065
     Dates: start: 20190925
  13. CAMRELIZUMAB [Concomitant]
     Active Substance: CAMRELIZUMAB
     Indication: ADENOCARCINOMA
     Dosage: DAY 1, EVERY 2 WEEKS ONE CYCLE, ON 22/NOV, 06/DEC, 20/DEC/2019, 03/JAN 2020, 16/JAN/2020 AND 20/FEB
     Route: 065
     Dates: start: 20191122
  14. OXALIPLATIN. [Concomitant]
     Active Substance: OXALIPLATIN
     Indication: ADENOCARCINOMA
     Dosage: DAY1, FLOFOXIRI REGIMEN ON 27/MAY, 11/JUN, 26/JUN AND 23/JUL/2019
     Route: 065
     Dates: start: 20190527
  15. IRINOTECAN [Concomitant]
     Active Substance: IRINOTECAN
     Indication: RECTAL CANCER
     Dosage: DAY1, FOLFIRI REGIMEN
     Route: 041
     Dates: start: 20190227
  16. IRINOTECAN [Concomitant]
     Active Substance: IRINOTECAN
     Indication: ADENOCARCINOMA
     Dosage: FOLFIRI REGIMEN, ON 13/MAR, 27/MAR, 10/APR, 26/APR AND 08/MAY/2019
     Route: 065
     Dates: start: 20190313
  17. FLUOROURACIL. [Concomitant]
     Active Substance: FLUOROURACIL
     Dosage: FLOFOXIRI REGIMEN,  CIV FOR 48 HOURS ON 27/MAY, 11/JUN, 26/JUN AND 23/JUL/2019
     Route: 065
     Dates: start: 20190527
  18. AVASTIN [Suspect]
     Active Substance: BEVACIZUMAB
     Indication: ADENOCARCINOMA
     Dosage: DAY1 ON 27/MAY, 11/JUN, 26 JUN AND 23/JUL/2019
     Route: 065
     Dates: start: 20190527
  19. CAMRELIZUMAB [Concomitant]
     Active Substance: CAMRELIZUMAB
     Dosage: DAY 1, ON 22/MAR/2020, 5/APR/2020
     Route: 065
     Dates: start: 20200322
  20. FOLINATE [Concomitant]
     Active Substance: LEUCOVORIN CALCIUM
     Indication: ADENOCARCINOMA
     Dosage: FOLFIRI REGIMEN, ON 13/MAR, 27/MAR, 10/APR, 26/APR AND 08/MAY/2019
     Route: 065
     Dates: start: 20190313
  21. APATINIB [Concomitant]
     Active Substance: APATINIB
     Indication: ADENOCARCINOMA
     Dosage: ON 22/NOV/2019, 06/DEC/2019, 20/DEC/2019, 03/JAN/2020, 16/JAN/2020 AND 20/FEB/2020
     Route: 065
     Dates: start: 20191122

REACTIONS (4)
  - Blood pressure increased [Unknown]
  - Dizziness [Unknown]
  - Pain in extremity [Recovering/Resolving]
  - Internal haemorrhage [Unknown]

NARRATIVE: CASE EVENT DATE: 2019
